FAERS Safety Report 9740925 (Version 3)
Quarter: 2014Q2

REPORT INFORMATION
  Report Type: Spontaneous
  Country: US (occurrence: US)
  Receive Date: 20131209
  Receipt Date: 20140501
  Transmission Date: 20141212
  Serious: No
  Sender: FDA-Public Use
  Company Number: US-BIOGENIDEC-2013BI099664

PATIENT
  Age: 65 Year
  Sex: Female

DRUGS (11)
  1. TECFIDERA [Suspect]
     Indication: MULTIPLE SCLEROSIS
     Route: 048
     Dates: start: 20131010, end: 20131016
  2. TECFIDERA [Suspect]
     Indication: MULTIPLE SCLEROSIS
     Route: 048
     Dates: start: 20131017
  3. TECFIDERA [Suspect]
     Indication: MULTIPLE SCLEROSIS
     Route: 048
     Dates: start: 20140110
  4. LOVASTATIN [Concomitant]
  5. LISINOPRIL [Concomitant]
  6. BACLOFEN [Concomitant]
  7. GABAPENTIN [Concomitant]
  8. HYDROCODONE-ACETAMINOPHEN [Concomitant]
  9. IBUPROFEN [Concomitant]
  10. OMEPRAZOLE [Concomitant]
  11. POTASSIUM CL ER [Concomitant]

REACTIONS (11)
  - Malaise [Unknown]
  - Respiratory tract infection [Not Recovered/Not Resolved]
  - Cough [Not Recovered/Not Resolved]
  - Pyrexia [Not Recovered/Not Resolved]
  - Chills [Not Recovered/Not Resolved]
  - Throat irritation [Not Recovered/Not Resolved]
  - White blood cell count increased [Not Recovered/Not Resolved]
  - Flushing [Recovered/Resolved]
  - Rash generalised [Not Recovered/Not Resolved]
  - Erythema [Recovered/Resolved]
  - Burning sensation [Unknown]
